FAERS Safety Report 9353553 (Version 2)
Quarter: 2013Q4

REPORT INFORMATION
  Report Type: Spontaneous
  Country: US (occurrence: US)
  Receive Date: 20130618
  Receipt Date: 20131205
  Transmission Date: 20140711
  Serious: Yes (Hospitalization)
  Sender: FDA-Public Use
  Company Number: US-BAYER-2013-072612

PATIENT
  Age: 28 Year
  Sex: Female
  Weight: 70.3 kg

DRUGS (12)
  1. MIRENA [Suspect]
     Indication: CONTRACEPTION
     Dosage: 20 MCG/24HR, CONT
     Route: 015
     Dates: start: 20050411, end: 20070305
  2. METROGEL [Concomitant]
     Dosage: 0.75 %, UNK
     Dates: start: 20061218
  3. FLONASE [Concomitant]
     Dosage: 50 ?G, UNK
     Dates: start: 20070105
  4. BENZOYL PEROXIDE [Concomitant]
     Dosage: UNK
     Dates: start: 20070130
  5. ALEVE LIQUID GELS [Concomitant]
     Dosage: UNK
     Dates: start: 200702
  6. IBUPROFEN [Concomitant]
     Dosage: UNK
     Dates: start: 200702
  7. PREVACID [Concomitant]
     Dosage: 30 MG, UNK
     Dates: start: 20070202
  8. CLINDAGEL [Concomitant]
     Dosage: 1 %, UNK
     Dates: start: 20070227
  9. TRETINOIN [Concomitant]
     Dosage: 0.025 %, UNK
     Dates: start: 20070227
  10. DOXYCYCLINE HYCLATE [Concomitant]
     Dosage: 100 MG, UNK
     Dates: start: 20070227, end: 20070313
  11. FLAGYL [Concomitant]
     Dosage: 500 MG, UNK
     Dates: start: 20070302, end: 20070316
  12. LEVOFLOXACIN [Concomitant]
     Dosage: 500 MG, UNK
     Dates: start: 20070302, end: 20070316

REACTIONS (6)
  - Device dislocation [None]
  - Pain [None]
  - Uterine cyst [None]
  - Migraine [None]
  - Endometriosis [None]
  - Menorrhagia [None]
